FAERS Safety Report 9682601 (Version 4)
Quarter: 2014Q1

REPORT INFORMATION
  Report Type: Spontaneous
  Country: GB (occurrence: GB)
  Receive Date: 20131112
  Receipt Date: 20140320
  Transmission Date: 20141002
  Serious: Yes (Other)
  Sender: FDA-Public Use
  Company Number: GB-ROCHE-1302054

PATIENT
  Age: 37 Year
  Sex: Female

DRUGS (6)
  1. XOLAIR [Suspect]
     Indication: ASTHMA
     Route: 058
     Dates: start: 2012
  2. XOLAIR [Suspect]
     Dosage: PAST
     Route: 058
  3. SYMBICORT [Concomitant]
  4. AZITHROMYCIN [Concomitant]
  5. SALBUTAMOL [Concomitant]
  6. CICLESONIDE [Concomitant]

REACTIONS (2)
  - Eczema [Recovering/Resolving]
  - Drug intolerance [Not Recovered/Not Resolved]
